FAERS Safety Report 4496632-5 (Version None)
Quarter: 2004Q4

REPORT INFORMATION
  Report Type: 
  Country: None (occurrence: None)
  Receive Date: 20040923
  Receipt Date: 20040730
  Transmission Date: 20050328
  Serious: No
  Sender: FDA-Public Use
  Company Number: WAES 0407USA02546

PATIENT
  Age: 33 Year
  Sex: Male

DRUGS (2)
  1. INVANZ [Suspect]
     Dosage: INK
  2. INSULIN [Concomitant]

REACTIONS (2)
  - DRUG HYPERSENSITIVITY [None]
  - RASH ERYTHEMATOUS [None]
